FAERS Safety Report 16243786 (Version 1)
Quarter: 2019Q2

REPORT INFORMATION
  Report Type: Spontaneous
  Country: US (occurrence: US)
  Receive Date: 20190426
  Receipt Date: 20190426
  Transmission Date: 20190711
  Serious: No
  Sender: FDA-Public Use
  Company Number: US-PFIZER INC-2017505960

PATIENT
  Age: 29 Year
  Sex: Female

DRUGS (3)
  1. GENOTROPIN [Suspect]
     Active Substance: SOMATROPIN
     Dosage: 0.4 MG, DAILY
     Dates: start: 20180322, end: 201807
  2. GENOTROPIN [Suspect]
     Active Substance: SOMATROPIN
     Indication: CRANIOCEREBRAL INJURY
     Dosage: 0.2 MG, DAILY
     Dates: start: 20171120
  3. GENOTROPIN [Suspect]
     Active Substance: SOMATROPIN
     Dosage: 0.2 MG, DAILY
     Dates: start: 201803

REACTIONS (1)
  - Drug effective for unapproved indication [Unknown]

NARRATIVE: CASE EVENT DATE: 20171120
